FAERS Safety Report 6579437-0 (Version None)
Quarter: 2010Q1

REPORT INFORMATION
  Report Type: 
  Country: None (occurrence: None)
  Receive Date: 20100209
  Receipt Date: 20100209
  Transmission Date: 20100710
  Serious: Yes (Hospitalization)
  Sender: FDA-Public Use
  Company Number: None

PATIENT
  Sex: Female
  Weight: 106.7 kg

DRUGS (1)
  1. LEXISCAN [Suspect]

REACTIONS (3)
  - BRADYCARDIA [None]
  - CONVULSION [None]
  - RESPIRATORY DEPRESSION [None]
